FAERS Safety Report 16977586 (Version 1)
Quarter: 2019Q4

REPORT INFORMATION
  Report Type: Spontaneous
  Country: FR (occurrence: FR)
  Receive Date: 20191031
  Receipt Date: 20191031
  Transmission Date: 20200122
  Serious: Yes (Hospitalization)
  Sender: FDA-Public Use
  Company Number: FR-BAXTER-2019BAX021261

PATIENT
  Age: 55 Year
  Sex: Female
  Weight: 68.2 kg

DRUGS (3)
  1. ENDOXAN 1000 MG, POUDRE POUR SOLUTIONINJECTABLE [Suspect]
     Active Substance: CYCLOPHOSPHAMIDE
     Indication: CUTANEOUS LUPUS ERYTHEMATOSUS
     Route: 042
     Dates: start: 20190806, end: 20191002
  2. MESNA EG [Suspect]
     Active Substance: MESNA
     Indication: PREMEDICATION
     Dosage: SOLUTION FOR INJECTION FOR INFUSION
     Route: 042
     Dates: start: 20190806, end: 20191002
  3. ZOPHREN [Suspect]
     Active Substance: ONDANSETRON
     Indication: PREMEDICATION
     Route: 051
     Dates: start: 20190806, end: 20191002

REACTIONS (2)
  - Segmental diverticular colitis [Not Recovered/Not Resolved]
  - Diarrhoea haemorrhagic [Recovered/Resolved]

NARRATIVE: CASE EVENT DATE: 20191002
